FAERS Safety Report 6968195-3 (Version None)
Quarter: 2010Q3

REPORT INFORMATION
  Report Type: 
  Country: None (occurrence: None)
  Receive Date: 20100907
  Receipt Date: 20100825
  Transmission Date: 20110219
  Serious: Yes (Other)
  Sender: FDA-Public Use
  Company Number: FI-ROCHE-674332

PATIENT
  Sex: Female

DRUGS (3)
  1. TAMIFLU [Suspect]
     Indication: H1N1 INFLUENZA
     Dosage: FREQUENCY: 1X2
     Route: 048
     Dates: start: 20091027, end: 20091031
  2. PANADOL [Concomitant]
     Route: 048
     Dates: start: 20091027, end: 20091028
  3. SERETIDE DISKUS [Concomitant]
     Route: 055

REACTIONS (1)
  - CHOLESTASIS OF PREGNANCY [None]
